FAERS Safety Report 25675623 (Version 2)
Quarter: 2025Q3

REPORT INFORMATION
  Report Type: Spontaneous
  Country: JP (occurrence: JP)
  Receive Date: 20250813
  Receipt Date: 20250818
  Transmission Date: 20251020
  Serious: Yes (Hospitalization, Other)
  Sender: PFIZER
  Company Number: JP-MLMSERVICE-20250804-PI603361-00218-1

PATIENT
  Age: 69 Year
  Sex: Female

DRUGS (2)
  1. METHOTREXATE SODIUM [Suspect]
     Active Substance: METHOTREXATE SODIUM
     Indication: Rheumatoid arthritis
  2. ETANERCEPT [Concomitant]
     Active Substance: ETANERCEPT
     Indication: Rheumatoid arthritis
     Dosage: 50 MG, WEEKLY

REACTIONS (5)
  - Lymphoproliferative disorder [Recovered/Resolved]
  - Pericardial effusion malignant [Recovered/Resolved]
  - Pericardial haemorrhage [Recovered/Resolved]
  - Pericardial effusion [Recovered/Resolved]
  - Diffuse large B-cell lymphoma [Recovered/Resolved]
